FAERS Safety Report 8314683-7 (Version None)
Quarter: 2012Q2

REPORT INFORMATION
  Report Type: 
  Country: None (occurrence: None)
  Receive Date: 20120426
  Receipt Date: 20120420
  Transmission Date: 20120825
  Serious: Yes (Hospitalization)
  Sender: FDA-Public Use
  Company Number: US-ELI_LILLY_AND_COMPANY-US201204007485

PATIENT
  Sex: Female

DRUGS (2)
  1. INSULIN [Concomitant]
  2. CYMBALTA [Suspect]
     Dosage: UNK, UNKNOWN

REACTIONS (4)
  - VOMITING [None]
  - DEPRESSION [None]
  - NAUSEA [None]
  - HOSPITALISATION [None]
